FAERS Safety Report 6982052-8 (Version None)
Quarter: 2010Q3

REPORT INFORMATION
  Report Type: 
  Country: None (occurrence: None)
  Receive Date: 20100914
  Receipt Date: 20091207
  Transmission Date: 20110219
  Serious: No
  Sender: FDA-Public Use
  Company Number: US-PFIZER INC-2009269711

PATIENT
  Age: 60 Year
  Sex: Female

DRUGS (3)
  1. LYRICA [Suspect]
     Dosage: 200 MG, 1X/DAY
  2. SEROQUEL [Suspect]
     Dosage: 600 MG, AT NIGHT
  3. CYMBALTA [Suspect]
     Dosage: 90 MG, 1X/DAY

REACTIONS (4)
  - AUTONOMIC NERVOUS SYSTEM IMBALANCE [None]
  - FALL [None]
  - FATIGUE [None]
  - FEELING COLD [None]
